FAERS Safety Report 15363867 (Version 1)
Quarter: 2018Q3

REPORT INFORMATION
  Report Type: Spontaneous
  Country: US (occurrence: US)
  Receive Date: 20180831
  Receipt Date: 20180831
  Transmission Date: 20181010
  Serious: No
  Sender: FDA-Public Use
  Company Number: None

PATIENT
  Age: 69 Year
  Sex: Female

DRUGS (1)
  1. SUTENT [Suspect]
     Active Substance: SUNITINIB MALATE
     Dates: start: 201611, end: 201701

REACTIONS (3)
  - Disease progression [None]
  - Pain [None]
  - Stomatitis [None]

NARRATIVE: CASE EVENT DATE: 20170127
